FAERS Safety Report 5320996-3 (Version None)
Quarter: 2007Q2

REPORT INFORMATION
  Report Type: 
  Country: None (occurrence: None)
  Receive Date: 20070510
  Receipt Date: 20070509
  Transmission Date: 20071010
  Serious: Yes (Life-Threatening, Other)
  Sender: FDA-Public Use
  Company Number: PHBS2006JP17209

PATIENT
  Age: 52 Year
  Sex: Male
  Weight: 58 kg

DRUGS (13)
  1. NEORAL [Suspect]
     Indication: HAEMOPHILIA
     Dosage: 300 MG/D
     Route: 048
     Dates: start: 20060821, end: 20060901
  2. NEORAL [Suspect]
     Dosage: 250 MG/D
     Route: 048
     Dates: start: 20060901, end: 20060901
  3. NEORAL [Suspect]
     Dosage: 200 MG/D
     Route: 048
     Dates: start: 20060901, end: 20061017
  4. NEORAL [Suspect]
     Dosage: 100 MG/D
     Route: 048
     Dates: start: 20061108
  5. NEORAL [Suspect]
     Dosage: 150 MG/D
     Route: 048
     Dates: end: 20070114
  6. NEORAL [Suspect]
     Dosage: 100 MG/D
     Route: 048
     Dates: start: 20070115
  7. PREDNISOLONE [Concomitant]
     Indication: HAEMOPHILIA
     Dosage: 40 MG/DAY
     Route: 048
     Dates: start: 20060821
  8. PREDNISOLONE [Concomitant]
     Dosage: 30 MG/DAY
     Route: 048
  9. PREDNISOLONE [Concomitant]
     Dosage: 20 MG/DAY
     Route: 048
  10. PREDNISOLONE [Concomitant]
     Dosage: 15 MG/DAY
     Route: 048
  11. FEIBA [Suspect]
     Indication: GASTROINTESTINAL HAEMORRHAGE
     Dosage: 3000 UG, BID
     Route: 042
     Dates: start: 20061013, end: 20061017
  12. NOVOSEVEN [Suspect]
     Indication: GASTROINTESTINAL HAEMORRHAGE
     Dosage: 4.8 MG, QID
     Route: 042
     Dates: start: 20061017, end: 20061017
  13. TRANSAMIN [Suspect]
     Indication: GASTROINTESTINAL HAEMORRHAGE
     Dosage: 2000 UG/DAY
     Route: 042
     Dates: start: 20061014, end: 20061017

REACTIONS (12)
  - BACK PAIN [None]
  - BLOOD BILIRUBIN INCREASED [None]
  - BLOOD CREATININE INCREASED [None]
  - BLOOD LACTATE DEHYDROGENASE INCREASED [None]
  - BLOOD UREA INCREASED [None]
  - DRUG LEVEL INCREASED [None]
  - GASTROINTESTINAL HAEMORRHAGE [None]
  - HAEMOGLOBIN DECREASED [None]
  - HAEMOLYTIC URAEMIC SYNDROME [None]
  - MELAENA [None]
  - OLIGURIA [None]
  - PLATELET COUNT DECREASED [None]
